FAERS Safety Report 4563729-0 (Version None)
Quarter: 2005Q1

REPORT INFORMATION
  Report Type: 
  Country: None (occurrence: None)
  Receive Date: 20050112
  Receipt Date: 20050112
  Transmission Date: 20050727
  Serious: No
  Sender: FDA-Public Use
  Company Number: None

PATIENT
  Sex: Female
  Weight: 74.3899 kg

DRUGS (3)
  1. DYAZIDE [Suspect]
     Indication: HYPERTENSION
     Dosage: 1 QD
     Dates: start: 20011001
  2. VICODIN ES [Suspect]
     Indication: PAIN
     Dosage: 1 QID PRN
     Dates: start: 20020301
  3. VICODIN ES [Suspect]
     Indication: SPINAL OSTEOARTHRITIS
     Dosage: 1 QID PRN
     Dates: start: 20020301

REACTIONS (1)
  - DRUG INEFFECTIVE [None]
